FAERS Safety Report 7409810-X (Version None)
Quarter: 2011Q2

REPORT INFORMATION
  Report Type: 
  Country: None (occurrence: None)
  Receive Date: 20110412
  Receipt Date: 20110405
  Transmission Date: 20111010
  Serious: Yes (Hospitalization, Other)
  Sender: FDA-Public Use
  Company Number: US-AMGEN-US351098

PATIENT
  Sex: Female
  Weight: 127.1 kg

DRUGS (13)
  1. AMINOCAPROIC ACID [Concomitant]
     Dosage: UNK UNK, UNK
     Route: 065
  2. POTASSIUM CHLORIDE [Concomitant]
     Dosage: UNK UNK, UNK
     Route: 065
  3. NPLATE [Suspect]
     Dates: start: 20081023, end: 20090122
  4. IRON [Concomitant]
     Dosage: UNK UNK, UNK
     Route: 065
  5. NPLATE [Suspect]
     Dosage: 9.5 A?G/KG, UNK
     Dates: end: 20090122
  6. EZETIMIBE [Concomitant]
     Dosage: UNK UNK, UNK
     Route: 065
  7. NPLATE [Suspect]
     Indication: IDIOPATHIC THROMBOCYTOPENIC PURPURA
     Dosage: UNK UNK, QWK
     Route: 058
     Dates: start: 20081023
  8. NPLATE [Suspect]
     Dosage: 2 A?G/KG, UNK
     Dates: end: 20100923
  9. VINCRISTINE SULFATE [Concomitant]
     Dosage: UNK UNK, UNK
     Route: 065
     Dates: start: 20090112, end: 20090202
  10. AMLODIPINE BESYLATE [Concomitant]
     Dosage: UNK UNK, UNK
     Route: 065
  11. LEVETIRACETAM [Concomitant]
     Dosage: UNK UNK, UNK
     Route: 065
  12. ATENOLOL [Concomitant]
     Dosage: UNK UNK, UNK
     Route: 065
  13. THEOPHYLLINE [Concomitant]
     Dosage: UNK UNK, UNK
     Route: 065

REACTIONS (3)
  - HOSPITALISATION [None]
  - DRUG INEFFECTIVE [None]
  - ARTHROPATHY [None]
